FAERS Safety Report 4839090-0 (Version None)
Quarter: 2005Q4

REPORT INFORMATION
  Report Type: 
  Country: None (occurrence: None)
  Receive Date: 20051129
  Receipt Date: 20051122
  Transmission Date: 20060501
  Serious: Yes (Other)
  Sender: FDA-Public Use
  Company Number: US-GLAXOSMITHKLINE-A0583446A

PATIENT
  Age: 74 Year
  Sex: Female

DRUGS (14)
  1. ADVAIR DISKUS 100/50 [Suspect]
     Indication: ASTHMA
     Dosage: 1PUFF PER DAY
     Route: 055
  2. DILTIA XT [Concomitant]
  3. COZAAR [Concomitant]
  4. FUROSEMIDE [Concomitant]
  5. POTASSIUM CHLORIDE [Concomitant]
  6. VYTORIN [Concomitant]
  7. ALLEGRA [Concomitant]
  8. DETROL LA [Concomitant]
  9. AMARYL [Concomitant]
  10. INSULIN [Concomitant]
  11. COMBIVENT [Concomitant]
  12. B12 [Concomitant]
  13. SENIOR MULTIVITAMIN [Concomitant]
  14. ALPHAGAN P [Concomitant]

REACTIONS (5)
  - CATARACT [None]
  - DRUG ADMINISTRATION ERROR [None]
  - DYSPNOEA [None]
  - GLAUCOMA [None]
  - MACULAR DEGENERATION [None]
